FAERS Safety Report 6706049-8 (Version None)
Quarter: 2010Q2

REPORT INFORMATION
  Report Type: 
  Country: None (occurrence: None)
  Receive Date: 20100423
  Receipt Date: 20100219
  Transmission Date: 20101027
  Serious: No
  Sender: FDA-Public Use
  Company Number: ALL1-2009-04146

PATIENT
  Age: 13 Year
  Sex: Male
  Weight: 61.2 kg

DRUGS (1)
  1. VYVANSE [Suspect]
     Indication: ATTENTION DEFICIT/HYPERACTIVITY DISORDER
     Dosage: 20 MG, 1X/DAY:QD, ORAL
     Route: 048
     Dates: end: 20091216

REACTIONS (3)
  - ABNORMAL BEHAVIOUR [None]
  - OFF LABEL USE [None]
  - PRODUCT QUALITY ISSUE [None]
